FAERS Safety Report 10929987 (Version 1)
Quarter: 2015Q1

REPORT INFORMATION
  Report Type: Spontaneous
  Country: US (occurrence: None)
  Receive Date: 20150317
  Receipt Date: 20150317
  Transmission Date: 20150721
  Serious: Yes (Other)
  Sender: FDA-Public Use
  Company Number: US-ZYDUS-007074

PATIENT
  Sex: Male

DRUGS (5)
  1. LEVOTHYROXINE (LEVOTHYROXINE) [Concomitant]
     Active Substance: LEVOTHYROXINE
  2. MORPHINE (MORPHINE) [Suspect]
     Active Substance: MORPHINE
     Route: 037
  3. DULOXETINE (DULOXETINE) [Concomitant]
     Active Substance: DULOXETINE
  4. GONADOTROPIN (GONADOTROPIN) [Concomitant]
  5. TESTOSTERONE (TESTOSTERONE) [Concomitant]

REACTIONS (5)
  - Hypogonadism [None]
  - Oedema [None]
  - Hypothyroidism [None]
  - Hypothalamo-pituitary disorder [None]
  - Adrenal insufficiency [None]
